FAERS Safety Report 6183153-7 (Version None)
Quarter: 2009Q2

REPORT INFORMATION
  Report Type: 
  Country: None (occurrence: None)
  Receive Date: 20090506
  Receipt Date: 20090425
  Transmission Date: 20091009
  Serious: Yes (Hospitalization)
  Sender: FDA-Public Use
  Company Number: FR-1169145

PATIENT
  Age: 80 Year
  Sex: Male

DRUGS (5)
  1. AZOPT [Suspect]
     Indication: GLAUCOMA
     Dosage: OPHTHALMIC
     Dates: end: 20090101
  2. XALACOM (XALACOM) [Concomitant]
  3. GLUCOPHAGE [Concomitant]
  4. HYZAAR [Concomitant]
  5. PREVISCAN (FLUINDIONE) [Concomitant]

REACTIONS (2)
  - RAYNAUD'S PHENOMENON [None]
  - SCLERODERMA [None]
